FAERS Safety Report 8643530 (Version 5)
Quarter: 2012Q4

REPORT INFORMATION
  Report Type: 
  Country: US (occurrence: US)
  Receive Date: 20120629
  Receipt Date: 20121105
  Transmission Date: 20130627
  Serious: Yes (Hospitalization, Other)
  Sender: FDA-Public Use
  Company Number: US-ASTELLAS-2012US005639

PATIENT
  Age: 49 Year
  Sex: Male
  Weight: 84 kg

DRUGS (9)
  1. PROGRAF [Suspect]
     Indication: RENAL TRANSPLANT
     Dosage: 4 mg, bid
     Route: 048
     Dates: start: 200508
  2. PROGRAF [Suspect]
     Indication: PANCREAS TRANSPLANT
  3. CELLCEPT                           /01275102/ [Concomitant]
     Indication: RENAL TRANSPLANT
     Dosage: 1000 mg, bid
     Route: 048
     Dates: start: 200508
  4. CELLCEPT                           /01275102/ [Concomitant]
     Indication: PANCREAS TRANSPLANT
  5. NEXIUM                             /01479302/ [Concomitant]
     Indication: ABDOMINAL DISCOMFORT
     Dosage: 40 mg, UID/QD
     Route: 048
     Dates: start: 1999
  6. COZAAR [Concomitant]
     Indication: HYPERTENSION
     Dosage: 25 mg, bid
     Route: 048
     Dates: start: 2010
  7. ASPIRIN [Concomitant]
     Indication: PLATELET AGGREGATION INHIBITION
     Dosage: 81 mg, UID/QD
     Route: 048
     Dates: start: 199201
  8. LANTUS [Concomitant]
     Indication: DIABETES MELLITUS
     Dosage: 25 U, QHS
     Route: 058
  9. NOVOLOG [Concomitant]
     Indication: DIABETES MELLITUS
     Dosage: 4-6 U, before meals and every PM
     Route: 058

REACTIONS (7)
  - Off label use [Unknown]
  - Toxicity to various agents [Recovered/Resolved]
  - Post procedural complication [Recovered/Resolved]
  - Laceration [Recovered/Resolved]
  - Rotator cuff syndrome [Not Recovered/Not Resolved]
  - Fall [Not Recovered/Not Resolved]
  - Renal failure chronic [Recovered/Resolved]
